FAERS Safety Report 10052241 (Version 2)
Quarter: 2014Q2

REPORT INFORMATION
  Report Type: Spontaneous
  Country: US (occurrence: US)
  Receive Date: 20140402
  Receipt Date: 20140605
  Transmission Date: 20141212
  Serious: Yes (Hospitalization)
  Sender: FDA-Public Use
  Company Number: US-SA-2014SA040728

PATIENT
  Age: 14 Month
  Sex: Male
  Weight: 9.6 kg

DRUGS (8)
  1. MYOZYME [Suspect]
     Indication: GLYCOGEN STORAGE DISEASE TYPE II
     Route: 042
     Dates: start: 20130113
  2. METHOTREXATE [Suspect]
     Indication: IMMUNE TOLERANCE INDUCTION
     Route: 065
     Dates: start: 20131113
  3. BORTEZOMIB [Suspect]
     Indication: IMMUNE TOLERANCE INDUCTION
     Route: 065
     Dates: start: 20131113
  4. RITUXIMAB [Suspect]
     Indication: IMMUNE TOLERANCE INDUCTION
     Route: 065
     Dates: start: 20131113
  5. RANITIDINE [Concomitant]
     Indication: GASTROOESOPHAGEAL REFLUX DISEASE
     Route: 048
  6. SOTALOL [Concomitant]
     Route: 048
  7. LEVOSALBUTAMOL HYDROCHLORIDE [Concomitant]
  8. MIRALAX [Concomitant]
     Indication: CONSTIPATION
     Route: 048

REACTIONS (4)
  - Respiratory failure [Recovered/Resolved]
  - Oxygen saturation decreased [Not Recovered/Not Resolved]
  - Rhinovirus infection [Recovered/Resolved]
  - Increased upper airway secretion [Not Recovered/Not Resolved]
